FAERS Safety Report 16320194 (Version 4)
Quarter: 2019Q3

REPORT INFORMATION
  Report Type: Spontaneous
  Country: US (occurrence: US)
  Receive Date: 20190516
  Receipt Date: 20190826
  Transmission Date: 20191004
  Serious: No
  Sender: FDA-Public Use
  Company Number: US-PFIZER INC-2018097947

PATIENT
  Age: 67 Year
  Sex: Female
  Weight: 63 kg

DRUGS (6)
  1. BACLOFEN. [Concomitant]
     Active Substance: BACLOFEN
     Indication: SLEEP DISORDER
     Dosage: 10 MG, 1X/DAY [IN THE EVENING]
     Route: 048
     Dates: start: 201804
  2. LYRICA [Suspect]
     Active Substance: PREGABALIN
     Indication: NEUROPATHY PERIPHERAL
     Dosage: 50 MG, 3X/DAY
     Route: 048
  3. BACLOFEN. [Concomitant]
     Active Substance: BACLOFEN
     Dosage: 5 MG, UNK [SOMETIMES SHE TAKES HALF A TABLET (5MG)]
  4. MAGNESIUM [Concomitant]
     Active Substance: MAGNESIUM
     Indication: FEELING OF RELAXATION
     Dosage: UNK, 1X/DAY[250 MG TO 500 MG CAPSULE IN THE EVENING]
     Route: 048
  5. LYRICA [Suspect]
     Active Substance: PREGABALIN
     Indication: GLUCOSE TOLERANCE IMPAIRED
  6. MELATONIN [Concomitant]
     Active Substance: MELATONIN
     Indication: SLEEP DISORDER
     Dosage: 2.5 MG, 1X/DAY [IN THE EVENING BEFORE BED]
     Route: 060

REACTIONS (6)
  - Drug ineffective [Unknown]
  - Malaise [Unknown]
  - Anxiety [Unknown]
  - Memory impairment [Unknown]
  - Fluid retention [Unknown]
  - Underdose [Unknown]
